FAERS Safety Report 14998838 (Version 1)
Quarter: 2018Q2

REPORT INFORMATION
  Report Type: Spontaneous
  Country: US (occurrence: US)
  Receive Date: 20180612
  Receipt Date: 20180612
  Transmission Date: 20180711
  Serious: Yes (Other)
  Sender: FDA-Public Use
  Company Number: US-MALLINCKRODT-T201802353

PATIENT
  Sex: Male
  Weight: 142 kg

DRUGS (2)
  1. FENTANYL CITRATE. [Suspect]
     Active Substance: FENTANYL CITRATE
     Indication: PAIN
     Dosage: EVERY 3 HOURS
     Route: 048
     Dates: end: 20180601
  2. FENTANYL TRANSDERMAL SYSTEM [Suspect]
     Active Substance: FENTANYL
     Indication: PAIN
     Dosage: P RESCRIBED Q 48 HOURS, BUT ACTUALLY CHANGES THEM Q 24 HOURS
     Route: 062

REACTIONS (8)
  - Nasopharyngitis [Unknown]
  - Withdrawal syndrome [Not Recovered/Not Resolved]
  - Headache [Unknown]
  - Tooth loss [Unknown]
  - Product adhesion issue [Unknown]
  - Weight increased [Unknown]
  - Insomnia [Unknown]
  - Drug effect incomplete [Unknown]
